FAERS Safety Report 6939856-7 (Version None)
Quarter: 2010Q3

REPORT INFORMATION
  Report Type: 
  Country: None (occurrence: None)
  Receive Date: 20100825
  Receipt Date: 20100816
  Transmission Date: 20110219
  Serious: Yes (Other)
  Sender: FDA-Public Use
  Company Number: ZA-JNJFOC-20100801771

PATIENT
  Sex: Female

DRUGS (8)
  1. DURAGESIC-100 [Suspect]
     Indication: PAIN
     Route: 062
  2. PRILOSEC [Concomitant]
  3. CELEBREX [Concomitant]
  4. LIVITON [Concomitant]
  5. AMILORIDE HCL AND HYDROCHLOROTHIAZIDE [Concomitant]
  6. ATACAND [Concomitant]
  7. UNKNOWN MEDICATION [Concomitant]
  8. REMERON [Concomitant]

REACTIONS (4)
  - CONFUSIONAL STATE [None]
  - EPISTAXIS [None]
  - GAIT DISTURBANCE [None]
  - HYPERTENSION [None]
